FAERS Safety Report 7752344-3 (Version None)
Quarter: 2011Q3

REPORT INFORMATION
  Report Type: 
  Country: None (occurrence: None)
  Receive Date: 20110915
  Receipt Date: 20110901
  Transmission Date: 20111222
  Serious: Yes (Life-Threatening, Hospitalization)
  Sender: FDA-Public Use
  Company Number: US-ELI_LILLY_AND_COMPANY-US201106006508

PATIENT
  Age: 35 Year
  Sex: Female
  Weight: 68.9 kg

DRUGS (17)
  1. CYMBALTA [Suspect]
     Dosage: UNK
     Dates: start: 20110625
  2. ADDERALL 5 [Concomitant]
     Dosage: 20 MG, QD
  3. VANCOMYCIN [Concomitant]
  4. FRAGMIN [Concomitant]
  5. ROCEPHIN [Concomitant]
  6. NORCO [Concomitant]
  7. HYDROCORTISONE [Concomitant]
  8. PROTONIX [Concomitant]
  9. FERROUS SULFATE TAB [Concomitant]
  10. LUNESTA [Concomitant]
  11. CYMBALTA [Suspect]
     Dosage: 120 MG, EACH EVENING
     Dates: start: 20110615, end: 20110621
  12. FENTANYL [Concomitant]
     Route: 062
  13. GEODON [Concomitant]
     Dosage: 50 MG, QD
  14. PROPOFOL [Concomitant]
  15. XANAX [Concomitant]
  16. HUMALOG [Suspect]
     Indication: METABOLIC ABNORMALITY MANAGEMENT
     Dosage: UNK
  17. ZITHROMAX [Concomitant]

REACTIONS (3)
  - GASTROINTESTINAL TUBE INSERTION [None]
  - PNEUMONIA PNEUMOCOCCAL [None]
  - RESPIRATORY FAILURE [None]
